FAERS Safety Report 5636165-3 (Version None)
Quarter: 2008Q1

REPORT INFORMATION
  Report Type: 
  Country: None (occurrence: None)
  Receive Date: 20080220
  Receipt Date: 20080220
  Transmission Date: 20080703
  Serious: Yes (Life-Threatening, Hospitalization, Other)
  Sender: FDA-Public Use
  Company Number: None

PATIENT
  Age: 23 Year
  Sex: Male
  Weight: 165.5629 kg

DRUGS (1)
  1. CHANTIX [Suspect]
     Indication: SMOKING CESSATION THERAPY
     Dosage: 1 1 PO
     Route: 048
     Dates: start: 20070901, end: 20071001

REACTIONS (8)
  - ALCOHOL USE [None]
  - DEPRESSION [None]
  - HYPOAESTHESIA [None]
  - MIGRAINE [None]
  - MUSCULOSKELETAL STIFFNESS [None]
  - NEURALGIA [None]
  - PAIN IN EXTREMITY [None]
  - SUICIDE ATTEMPT [None]
